FAERS Safety Report 12936538 (Version 2)
Quarter: 2016Q4

REPORT INFORMATION
  Report Type: Spontaneous
  Country: US (occurrence: US)
  Receive Date: 20161114
  Receipt Date: 20161207
  Transmission Date: 20170207
  Serious: No
  Sender: FDA-Public Use
  Company Number: US-ASTRAZENECA-2016SF15819

PATIENT
  Sex: Female
  Weight: 58.1 kg

DRUGS (2)
  1. SYMLIN [Suspect]
     Active Substance: PRAMLINTIDE ACETATE
     Indication: DIABETES MELLITUS
     Dosage: 60 MCG PEN, 4-5 TIMES DAILY BEFORE MEALS AS NEEDED
     Route: 058
     Dates: start: 201603
  2. VICTOZA [Concomitant]
     Active Substance: LIRAGLUTIDE
     Indication: DIABETES MELLITUS
     Dosage: DAILY
     Route: 065
     Dates: start: 201501

REACTIONS (2)
  - Blood glucose increased [Unknown]
  - Malaise [Unknown]
